FAERS Safety Report 6904681-X (Version None)
Quarter: 2010Q3

REPORT INFORMATION
  Report Type: 
  Country: None (occurrence: None)
  Receive Date: 20100804
  Receipt Date: 20090630
  Transmission Date: 20110219
  Serious: No
  Sender: FDA-Public Use
  Company Number: US-PFIZER INC-2009208096

PATIENT
  Age: 40 Year
  Sex: Female
  Weight: 99.8 kg

DRUGS (7)
  1. LYRICA [Suspect]
     Indication: FIBROMYALGIA
     Dosage: 75 MG, 2X/DAY
     Dates: end: 20080101
  2. PRILOSEC [Concomitant]
     Dosage: UNK
  3. XANAX [Concomitant]
     Indication: PANIC ATTACK
     Dosage: UNK
  4. DIOVAN HCT [Concomitant]
     Indication: HYPERTENSION
     Dosage: UNK
  5. VERAPAMIL [Concomitant]
     Indication: HYPERTENSION
     Dosage: UNK
  6. TYLENOL [Concomitant]
     Dosage: UNK
  7. NEURONTIN [Concomitant]
     Dosage: UNK

REACTIONS (3)
  - ANAEMIA [None]
  - IMPAIRED WORK ABILITY [None]
  - PAIN [None]
